FAERS Safety Report 15013043 (Version 9)
Quarter: 2021Q2

REPORT INFORMATION
  Report Type: Report from Study
  Country: JP (occurrence: JP)
  Receive Date: 20180614
  Receipt Date: 20210603
  Transmission Date: 20210716
  Serious: Yes (Hospitalization, Other)
  Sender: FDA-Public Use
  Company Number: JP-MYLANLABS-2018M1039527

PATIENT
  Age: 3 Year
  Sex: Female
  Weight: 14.2 kg

DRUGS (51)
  1. URINMET [Concomitant]
     Active Substance: POTASSIUM CITRATE\SODIUM CITRATE
     Indication: PRODUCT USED FOR UNKNOWN INDICATION
     Dosage: 3.5 G, UNK
     Route: 048
     Dates: start: 20170412, end: 20180206
  2. BICARBONATE SODIUM [Concomitant]
     Active Substance: SODIUM BICARBONATE
     Indication: PRODUCT USED FOR UNKNOWN INDICATION
     Dosage: 3.5 G, UNK
     Route: 048
     Dates: start: 20160511, end: 20181120
  3. ASPARA K [Concomitant]
     Active Substance: POTASSIUM ASPARTATE
     Dosage: 2.6 G, UNK
     Route: 048
     Dates: start: 20171206, end: 20180116
  4. ASPARA K [Concomitant]
     Active Substance: POTASSIUM ASPARTATE
     Dosage: 7 GRAM
     Route: 048
     Dates: start: 20180915, end: 20181016
  5. CARBOCYSTEINE [Concomitant]
     Active Substance: CARBOCYSTEINE
     Indication: PRODUCT USED FOR UNKNOWN INDICATION
     Dosage: 0.7 G, UNK
     Route: 048
     Dates: start: 20180307, end: 20180314
  6. TULOBUTEROL [Concomitant]
     Active Substance: TULOBUTEROL
     Indication: PRODUCT USED FOR UNKNOWN INDICATION
     Dosage: 0.5 G, UNK
     Route: 048
     Dates: start: 20180307, end: 20180314
  7. TULOBUTEROL [Concomitant]
     Active Substance: TULOBUTEROL
     Dosage: 0.7 UNK
     Route: 048
     Dates: start: 20180815, end: 20180822
  8. POTASSIUM CITRATE W/SODIUM CITRATE [Concomitant]
     Active Substance: POTASSIUM CITRATE\SODIUM CITRATE
     Dosage: 4 GRAM
     Route: 048
     Dates: start: 20180711, end: 20200303
  9. ASPARA K [Concomitant]
     Active Substance: POTASSIUM ASPARTATE
     Dosage: 4 G, UNK
     Route: 048
     Dates: start: 20180516, end: 20180612
  10. POTASSIUM CITRATE W/SODIUM CITRATE [Concomitant]
     Active Substance: POTASSIUM CITRATE\SODIUM CITRATE
     Indication: PRODUCT USED FOR UNKNOWN INDICATION
     Dosage: 3.5 GRAM
     Route: 048
     Dates: start: 20180207, end: 20180710
  11. GENOTROPIN [Concomitant]
     Active Substance: SOMATROPIN
     Dosage: 1.0 MILLIGRAM, 3 TIMES A WEEK
     Route: 058
     Dates: start: 20191002, end: 20200121
  12. POTASSIUM CHLORIDE. [Concomitant]
     Active Substance: POTASSIUM CHLORIDE
     Dosage: 8.0 GRAM, QD
     Route: 048
     Dates: start: 20200121
  13. PHOSRIBBON [Concomitant]
     Dosage: 350 MG, UNK
     Route: 048
     Dates: start: 20161207, end: 20171205
  14. ASPARA K [Concomitant]
     Active Substance: POTASSIUM ASPARTATE
     Dosage: 6 UNK
     Route: 048
     Dates: start: 20180613, end: 20180814
  15. ASPARA K [Concomitant]
     Active Substance: POTASSIUM ASPARTATE
     Dosage: 8 UNK
     Route: 048
     Dates: start: 20181219, end: 20190115
  16. CARBOCYSTEINE [Concomitant]
     Active Substance: CARBOCYSTEINE
     Dosage: 0.7 GRAM
     Route: 048
     Dates: start: 20180815, end: 20180822
  17. POTASSIUM CHLORIDE. [Concomitant]
     Active Substance: POTASSIUM CHLORIDE
     Indication: PRODUCT USED FOR UNKNOWN INDICATION
     Dosage: 4.4 GRAM, QD
     Route: 048
     Dates: start: 20190612, end: 20190716
  18. BICARBONATE SODIUM [Concomitant]
     Active Substance: SODIUM BICARBONATE
     Dosage: 3 UNK
     Route: 048
     Dates: start: 20181120, end: 20191001
  19. ALFAROL [Concomitant]
     Active Substance: ALFACALCIDOL
     Dosage: 1.0 MICROGRAM, QD
     Route: 048
     Dates: start: 20190612, end: 20191022
  20. ASPARA K [Concomitant]
     Active Substance: POTASSIUM ASPARTATE
     Indication: PRODUCT USED FOR UNKNOWN INDICATION
     Dosage: 2.4 G, UNK
     Route: 048
     Dates: start: 20171101, end: 20171205
  21. ASPARA K [Concomitant]
     Active Substance: POTASSIUM ASPARTATE
     Dosage: 6.4 GRAM
     Route: 048
     Dates: start: 20180815, end: 20180914
  22. ASPARA K [Concomitant]
     Active Substance: POTASSIUM ASPARTATE
     Dosage: 8 UNK
     Route: 048
     Dates: start: 20190116, end: 20190507
  23. ASPARA K [Concomitant]
     Active Substance: POTASSIUM ASPARTATE
     Dosage: 8 UNK
     Route: 048
     Dates: start: 20190508, end: 20190611
  24. GENOTROPIN [Concomitant]
     Active Substance: SOMATROPIN
     Dosage: 0.4 GRAM, 7 TIMES A WEEK
     Route: 058
     Dates: start: 20210421
  25. POTASSIUM CHLORIDE. [Concomitant]
     Active Substance: POTASSIUM CHLORIDE
     Dosage: 4.8 GRAM, QD
     Route: 048
     Dates: start: 20190717, end: 20190827
  26. PHOSRIBBON [Concomitant]
     Dosage: 400 MG, UNK
     Route: 048
     Dates: start: 20171206, end: 20200121
  27. ASPARA K [Concomitant]
     Active Substance: POTASSIUM ASPARTATE
     Dosage: 3 G, UNK
     Route: 048
     Dates: start: 20180307, end: 20180409
  28. BIO?THREE [Concomitant]
     Active Substance: HERBALS
     Dosage: 0.5 G, UNK
     Route: 048
     Dates: start: 20190409, end: 20190416
  29. GENOTROPIN [Concomitant]
     Active Substance: SOMATROPIN
     Indication: PRODUCT USED FOR UNKNOWN INDICATION
     Dosage: 0.4 MILLIGRAM, SIX TIMES A WEEK
     Route: 058
     Dates: start: 20190320, end: 20191001
  30. PHOSRIBBON [Concomitant]
     Dosage: 450 MILLIGRAM, QD
     Route: 048
     Dates: start: 20200122
  31. BICARBONATE SODIUM [Concomitant]
     Active Substance: SODIUM BICARBONATE
     Dosage: 4 GRAM, QD
     Route: 048
     Dates: start: 20191002, end: 20200609
  32. ALFAROL [Concomitant]
     Active Substance: ALFACALCIDOL
     Indication: PRODUCT USED FOR UNKNOWN INDICATION
     Dosage: 0.8 ?G, UNK
     Route: 048
     Dates: start: 20160406, end: 20190611
  33. ASPARA K [Concomitant]
     Active Substance: POTASSIUM ASPARTATE
     Dosage: 7.5 GRAM
     Route: 048
     Dates: start: 20181017, end: 20181120
  34. L CARTIN [Concomitant]
     Active Substance: LEVOCARNITINE HYDROCHLORIDE
     Indication: PRODUCT USED FOR UNKNOWN INDICATION
     Dosage: 3 MILLILITER, QD
     Route: 048
     Dates: start: 20160302, end: 20200610
  35. CARBOCYSTEINE [Concomitant]
     Active Substance: CARBOCYSTEINE
     Dosage: ??
     Route: 048
     Dates: start: 20180307, end: 20180409
  36. NESP [Concomitant]
     Active Substance: DARBEPOETIN ALFA
     Indication: PRODUCT USED FOR UNKNOWN INDICATION
     Dosage: 5 ?G, UNK
     Route: 042
     Dates: start: 20170607, end: 20170927
  37. POTASSIUM CHLORIDE. [Concomitant]
     Active Substance: POTASSIUM CHLORIDE
     Dosage: 5.6 GRAM, QD
     Route: 048
     Dates: start: 20190828, end: 20191022
  38. POTASSIUM CHLORIDE. [Concomitant]
     Active Substance: POTASSIUM CHLORIDE
     Dosage: 6.0 GRAM, QD
     Route: 048
     Dates: start: 20191023, end: 20191217
  39. POTASSIUM CHLORIDE. [Concomitant]
     Active Substance: POTASSIUM CHLORIDE
     Dosage: 7.0 GRAM, QD
     Route: 048
     Dates: start: 20191218, end: 20200121
  40. NICYSTAGON CAP. 150MG [Suspect]
     Active Substance: CYSTEAMINE
     Indication: PRODUCT USED FOR UNKNOWN INDICATION
     Dosage: 150 MG, QID
     Route: 065
     Dates: start: 20170628
  41. BICARBONATE SODIUM [Concomitant]
     Active Substance: SODIUM BICARBONATE
     Dosage: 5 GRAM, QD
     Route: 048
     Dates: start: 20200610
  42. ASPARA K [Concomitant]
     Active Substance: POTASSIUM ASPARTATE
     Dosage: 2.8 G, UNK
     Route: 048
     Dates: start: 20170117, end: 20180306
  43. POTASSIUM CITRATE W/SODIUM CITRATE [Concomitant]
     Active Substance: POTASSIUM CITRATE\SODIUM CITRATE
     Dosage: 5 GRAM, QD
     Route: 048
     Dates: start: 20200304, end: 20210420
  44. POTASSIUM CITRATE W/SODIUM CITRATE [Concomitant]
     Active Substance: POTASSIUM CITRATE\SODIUM CITRATE
     Dosage: 6 GRAM, QD
     Route: 048
     Dates: start: 20210421
  45. SODIUM CHLORIDE. [Concomitant]
     Active Substance: SODIUM CHLORIDE
     Indication: PRODUCT USED FOR UNKNOWN INDICATION
     Dosage: 3 GRAM, QD
     Route: 048
     Dates: start: 20181121
  46. GENOTROPIN [Concomitant]
     Active Substance: SOMATROPIN
     Dosage: 1.5 MILLIGRAM, 3 TIMES A WEEK
     Route: 058
     Dates: start: 20200122, end: 20200804
  47. GENOTROPIN [Concomitant]
     Active Substance: SOMATROPIN
     Dosage: 0.8 GRAM, 6 TIMES A WEEK
     Route: 058
     Dates: start: 20200805, end: 20210420
  48. PHOSRIBBON [Concomitant]
     Indication: PRODUCT USED FOR UNKNOWN INDICATION
     Dosage: 400 MG, UNK
     Route: 048
     Dates: start: 20161109, end: 20161206
  49. ASPARA K [Concomitant]
     Active Substance: POTASSIUM ASPARTATE
     Dosage: 3.2 G, UNK
     Route: 048
     Dates: start: 20180410, end: 20180515
  50. ASPARA K [Concomitant]
     Active Substance: POTASSIUM ASPARTATE
     Dosage: 8 UNK
     Route: 048
     Dates: start: 20181121, end: 20181218
  51. BIO?THREE [Concomitant]
     Active Substance: HERBALS
     Indication: PRODUCT USED FOR UNKNOWN INDICATION
     Dosage: 0.5 G, UNK
     Route: 048
     Dates: start: 20180110, end: 20180117

REACTIONS (9)
  - Conjunctivitis allergic [Recovered/Resolved]
  - Gastroenteritis [Recovered/Resolved]
  - Hypokalaemia [Recovered/Resolved]
  - Contusion [Recovered/Resolved]
  - Tooth injury [Recovered/Resolved]
  - Sinusitis [Recovered/Resolved]
  - Enteritis infectious [Recovered/Resolved]
  - Gastroenteritis rotavirus [Recovered/Resolved]
  - Gastroenteritis [Recovered/Resolved]

NARRATIVE: CASE EVENT DATE: 20180108
